FAERS Safety Report 8378870-4 (Version None)
Quarter: 2012Q2

REPORT INFORMATION
  Report Type: 
  Country: None (occurrence: None)
  Receive Date: 20120522
  Receipt Date: 20120522
  Transmission Date: 20120825
  Serious: Yes (Hospitalization)
  Sender: FDA-Public Use
  Company Number: None

PATIENT
  Age: 56 Year
  Sex: Male
  Weight: 104 kg

DRUGS (1)
  1. HYDROGEN PEROXIDE SOLUTION [Suspect]
     Indication: URTICARIA
     Dosage: 3 OZ. --90ML-IN 1 OZ. WATER ONE TIME PO
     Route: 048
     Dates: start: 20120514, end: 20120514

REACTIONS (7)
  - ASTHENIA [None]
  - INCORRECT DOSE ADMINISTERED [None]
  - VOMITING [None]
  - ABDOMINAL DISCOMFORT [None]
  - MUSCULAR WEAKNESS [None]
  - SENSORY LOSS [None]
  - CHEST DISCOMFORT [None]
